FAERS Safety Report 8182442 (Version 8)
Quarter: 2014Q2

REPORT INFORMATION
  Report Type: Report from Study
  Country: CH (occurrence: CH)
  Receive Date: 20111015
  Receipt Date: 20140415
  Transmission Date: 20141212
  Serious: Yes (Hospitalization)
  Sender: FDA-Public Use
  Company Number: CH-ROCHE-1000800

PATIENT
  Age: 47 Year
  Sex: Male
  Weight: 73 kg

DRUGS (6)
  1. VEMURAFENIB [Suspect]
     Indication: MALIGNANT MELANOMA
     Dosage: DOSE FORM: REPORTED AS 240 MG, LAST DOSE: 15 SEPTEMBER 2011
     Route: 048
     Dates: start: 20110820
  2. NEXIUM [Concomitant]
     Route: 065
     Dates: start: 20110819
  3. FRAXIFORTE [Concomitant]
     Route: 065
     Dates: start: 20110901
  4. CALCIMAGON [Concomitant]
     Route: 065
     Dates: start: 20110819
  5. TORASEMIDE [Concomitant]
     Route: 065
     Dates: start: 20110901, end: 20110919
  6. FOLIC ACID [Concomitant]
     Route: 065
     Dates: start: 20110905

REACTIONS (1)
  - Pleural effusion [Recovering/Resolving]
